FAERS Safety Report 19755182 (Version 1)
Quarter: 2021Q3

REPORT INFORMATION
  Report Type: Spontaneous
  Country: US (occurrence: US)
  Receive Date: 20210827
  Receipt Date: 20210827
  Transmission Date: 20211014
  Serious: Yes (Hospitalization)
  Sender: FDA-Public Use
  Company Number: None

PATIENT
  Age: 35 Year
  Sex: Male

DRUGS (2)
  1. NONE LISTED [Concomitant]
  2. SODIUM PHENY PWD [Suspect]
     Active Substance: PHENYTOIN SODIUM
     Indication: ARGININOSUCCINATE SYNTHETASE DEFICIENCY
     Route: 048
     Dates: start: 20180419

REACTIONS (1)
  - Hospitalisation [None]
